FAERS Safety Report 7049557-5 (Version None)
Quarter: 2010Q4

REPORT INFORMATION
  Report Type: 
  Country: None (occurrence: None)
  Receive Date: 20101013
  Receipt Date: 20100929
  Transmission Date: 20110411
  Serious: Yes (Hospitalization)
  Sender: FDA-Public Use
  Company Number: 2010P1001590

PATIENT
  Age: 72 Year
  Sex: Female
  Weight: 77.1115 kg

DRUGS (5)
  1. FENTANYL [Suspect]
     Indication: FIBROMYALGIA
     Dosage: 50 MCG/HR;Q72H;TDER
     Route: 062
     Dates: start: 20100920
  2. LEVOTHYROXINE SODIUM [Concomitant]
  3. FISH OIL [Concomitant]
  4. VITAMINS [Concomitant]
  5. PREV MEDS [Concomitant]

REACTIONS (5)
  - APPLICATION SITE PRURITUS [None]
  - DIVERTICULITIS [None]
  - NASAL DISCOMFORT [None]
  - PRURITUS GENERALISED [None]
  - SKIN BURNING SENSATION [None]
